FAERS Safety Report 4460386-9 (Version None)
Quarter: 2004Q3

REPORT INFORMATION
  Report Type: 
  Country: None (occurrence: None)
  Receive Date: 20040928
  Receipt Date: 20040503
  Transmission Date: 20050211
  Serious: No
  Sender: FDA-Public Use
  Company Number: US-GLAXOSMITHKLINE-A0509241A

PATIENT
  Age: 58 Year
  Sex: Female

DRUGS (5)
  1. SEREVENT [Suspect]
     Indication: ASTHMA
     Dosage: 1PUFF TWICE PER DAY
     Route: 055
     Dates: start: 20030101, end: 20030101
  2. QVAR 40 [Concomitant]
  3. VERAPAMIL [Concomitant]
  4. LEVOTHROID [Concomitant]
  5. EFFEXOR [Concomitant]

REACTIONS (1)
  - CHEST DISCOMFORT [None]
